FAERS Safety Report 5437603-1 (Version None)
Quarter: 2007Q3

REPORT INFORMATION
  Report Type: 
  Country: None (occurrence: None)
  Receive Date: 20070831
  Receipt Date: 20070821
  Transmission Date: 20080115
  Serious: Yes (Hospitalization)
  Sender: FDA-Public Use
  Company Number: US-ROCHE-512673

PATIENT
  Age: 46 Year
  Sex: Female

DRUGS (3)
  1. XELODA [Suspect]
     Indication: BREAST CANCER
     Route: 065
     Dates: start: 20070510
  2. XELODA [Suspect]
     Route: 065
  3. TYKERB [Suspect]
     Indication: BREAST CANCER
     Route: 065
     Dates: start: 20070510

REACTIONS (2)
  - CLOSTRIDIAL INFECTION [None]
  - DIARRHOEA [None]
